FAERS Safety Report 9541808 (Version 2)
Quarter: 2013Q3

REPORT INFORMATION
  Report Type: Report from Study
  Country: NZ (occurrence: NZ)
  Receive Date: 20130923
  Receipt Date: 20130923
  Transmission Date: 20140515
  Serious: Yes (Hospitalization, Other)
  Sender: FDA-Public Use
  Company Number: PHHY2013NZ092765

PATIENT
  Age: 44 Year
  Sex: Male

DRUGS (11)
  1. CLOZARIL [Suspect]
     Indication: SCHIZOPHRENIA
     Dosage: UNK
     Dates: start: 20120221
  2. CLOZARIL [Suspect]
     Dosage: 12.5 MG, QD
     Route: 048
     Dates: start: 20130618
  3. CLOZARIL [Suspect]
     Dosage: 150 MG, DAILY
     Dates: start: 20130619, end: 20130701
  4. VENLAFAXINE XR [Concomitant]
     Indication: ANXIETY
     Dosage: 225 MG, MANE
     Route: 048
  5. VENLAFAXINE XR [Concomitant]
     Indication: OBSESSIVE-COMPULSIVE DISORDER
  6. ATORVASTATIN [Concomitant]
     Indication: LIPIDS INCREASED
     Dosage: 10 MG, MANE
     Route: 048
  7. ATORVASTATIN [Concomitant]
     Dosage: UNK
  8. METOPROLOL [Concomitant]
     Indication: HYPERTENSION
     Dosage: 47.5 MG, MANE
     Route: 048
  9. FELO [Concomitant]
     Indication: HYPERTENSION
     Dosage: 5 MG, MANE (EXTENDED RELEASE)
     Route: 048
  10. HALOPERIDOL [Concomitant]
     Indication: SCHIZOPHRENIA
     Dosage: 1.5 MG, BID
     Route: 048
  11. HALOPERIDOL [Concomitant]
     Dosage: 2 MG, TID
     Route: 048

REACTIONS (12)
  - Myocardial strain [Unknown]
  - Electrocardiogram T wave inversion [Recovered/Resolved]
  - Tachycardia [Recovered/Resolved]
  - Cardiac disorder [Recovered/Resolved]
  - Left ventricular dysfunction [Unknown]
  - Diastolic dysfunction [Unknown]
  - Palpitations [Recovered/Resolved]
  - Oedema [Unknown]
  - Dyspnoea [Unknown]
  - Troponin T increased [Recovering/Resolving]
  - Musculoskeletal chest pain [Unknown]
  - Postural tremor [Unknown]
